FAERS Safety Report 8118255-9 (Version None)
Quarter: 2012Q1

REPORT INFORMATION
  Report Type: 
  Country: None (occurrence: None)
  Receive Date: 20120201
  Receipt Date: 20120125
  Transmission Date: 20120608
  Serious: Yes (Death, Other)
  Sender: FDA-Public Use
  Company Number: 2012MA000539

PATIENT
  Age: 40 Year
  Sex: Male

DRUGS (2)
  1. CISPLATIN [Concomitant]
  2. VINORELBINE [Suspect]
     Indication: LUNG CARCINOMA CELL TYPE UNSPECIFIED STAGE IV
     Dosage: ;6X;

REACTIONS (7)
  - LUNG NEOPLASM MALIGNANT [None]
  - CHEST PAIN [None]
  - NEOPLASM PROGRESSION [None]
  - GENERAL PHYSICAL HEALTH DETERIORATION [None]
  - METASTASES TO CENTRAL NERVOUS SYSTEM [None]
  - LYMPHADENOPATHY MEDIASTINAL [None]
  - THROMBOSIS [None]
